FAERS Safety Report 17487407 (Version 2)
Quarter: 2020Q3

REPORT INFORMATION
  Report Type: Spontaneous
  Country: US (occurrence: US)
  Receive Date: 20200303
  Receipt Date: 20200924
  Transmission Date: 20201102
  Serious: No
  Sender: FDA-Public Use
  Company Number: US-BAUSCH-BL-2020-006143

PATIENT
  Age: 5 Decade
  Sex: Female

DRUGS (1)
  1. PLENVU [Suspect]
     Active Substance: ASCORBIC ACID\POLYETHYLENE GLYCOL 3350\POTASSIUM CHLORIDE\SODIUM ASCORBATE\SODIUM CHLORIDE\SODIUM SULFATE
     Indication: BOWEL PREPARATION
     Dosage: DIVIDED DOSE ON THE SAME DAY (6 PM AND 11 PM)
     Route: 048

REACTIONS (7)
  - Hyperhidrosis [Unknown]
  - Presyncope [Unknown]
  - Inappropriate schedule of product administration [Unknown]
  - Palpitations [Unknown]
  - Product taste abnormal [Unknown]
  - Nausea [Unknown]
  - Heart rate increased [Unknown]
